FAERS Safety Report 10057910 (Version 1)
Quarter: 2014Q2

REPORT INFORMATION
  Report Type: Spontaneous
  Country: US (occurrence: None)
  Receive Date: 20140403
  Receipt Date: 20140403
  Transmission Date: 20141212
  Serious: Yes (Other)
  Sender: FDA-Public Use
  Company Number: None

PATIENT
  Sex: 0

DRUGS (1)
  1. RISPERDAL [Suspect]

REACTIONS (5)
  - Weight increased [None]
  - Overdose [None]
  - Semen volume decreased [None]
  - Mental disorder [None]
  - Imprisonment [None]
